FAERS Safety Report 6938565-8 (Version None)
Quarter: 2010Q3

REPORT INFORMATION
  Report Type: 
  Country: None (occurrence: None)
  Receive Date: 20100824
  Receipt Date: 20100811
  Transmission Date: 20110219
  Serious: Yes (Hospitalization)
  Sender: FDA-Public Use
  Company Number: AT-CELGENEUS-009-C5013-10050736

PATIENT
  Sex: Male
  Weight: 65 kg

DRUGS (24)
  1. LENALIDOMIDE [Suspect]
     Indication: MULTIPLE MYELOMA
     Route: 048
     Dates: start: 20100506
  2. LENALIDOMIDE [Suspect]
     Route: 048
     Dates: start: 20100304
  3. DEXAMETHASONE [Suspect]
     Indication: MULTIPLE MYELOMA
     Route: 065
     Dates: start: 20100506
  4. DEXAMETHASONE [Suspect]
     Route: 065
     Dates: start: 20100304
  5. FRAGMIN [Concomitant]
     Route: 058
     Dates: start: 20100101
  6. SIMVASTATIN [Concomitant]
     Indication: HYPERCHOLESTEROLAEMIA
     Route: 048
     Dates: start: 20100101
  7. ENALAPRIL [Concomitant]
     Indication: HYPERTENSION
     Route: 048
     Dates: start: 20100101
  8. PANTOPRAZOLE SODIUM [Concomitant]
     Indication: PROPHYLAXIS
     Route: 048
     Dates: start: 20100101
  9. CONCOR [Concomitant]
     Indication: HYPERTENSION
     Route: 048
     Dates: start: 20100101
  10. NOVORAPID [Concomitant]
     Indication: DIABETES MELLITUS
     Route: 058
     Dates: start: 20100101
  11. INSULATARD [Concomitant]
     Indication: DIABETES MELLITUS
     Route: 058
     Dates: start: 20100101
  12. LEVOTHYROXINE SODIUM [Concomitant]
     Route: 048
     Dates: start: 20100131
  13. PERFALGAN [Concomitant]
     Indication: BACK PAIN
     Route: 051
     Dates: start: 20100101
  14. ZOFRAN [Concomitant]
     Indication: NAUSEA
     Route: 048
     Dates: start: 20100312, end: 20100312
  15. ZOFRAN [Concomitant]
     Route: 048
     Dates: start: 20100415, end: 20100622
  16. FEDIP [Concomitant]
     Indication: HYPERTENSION
     Route: 048
     Dates: start: 20100304
  17. NULYTELY [Concomitant]
     Route: 048
     Dates: start: 20100304, end: 20100317
  18. RELISTOR [Concomitant]
     Route: 051
     Dates: start: 20100224
  19. GLADEM [Concomitant]
     Indication: DEPRESSION
     Route: 048
     Dates: start: 20100423
  20. HYDAL [Concomitant]
     Indication: BACK PAIN
     Route: 048
     Dates: start: 20100415, end: 20100510
  21. HYDAL [Concomitant]
     Route: 048
     Dates: start: 20100415, end: 20100506
  22. HYDAL [Concomitant]
     Route: 048
     Dates: start: 20100507, end: 20100510
  23. HYDAL [Concomitant]
     Route: 048
     Dates: start: 20100511, end: 20100514
  24. BINOCRIT [Concomitant]
     Indication: ANAEMIA
     Route: 058
     Dates: start: 20100512, end: 20100514

REACTIONS (3)
  - GENERAL PHYSICAL HEALTH DETERIORATION [None]
  - VOMITING [None]
  - WEIGHT DECREASED [None]
